FAERS Safety Report 18310363 (Version 6)
Quarter: 2021Q3

REPORT INFORMATION
  Report Type: Other
  Country: JP (occurrence: JP)
  Receive Date: 20200925
  Receipt Date: 20210920
  Transmission Date: 20211014
  Serious: Yes (Hospitalization, Other)
  Sender: FDA-Public Use
  Company Number: JP-ROCHE-2684507

PATIENT
  Age: 49 Year
  Sex: Female
  Weight: 47.3 kg

DRUGS (3)
  1. ENTRECTINIB [Suspect]
     Active Substance: ENTRECTINIB
     Indication: RECTAL CANCER
  2. ENTRECTINIB [Suspect]
     Active Substance: ENTRECTINIB
     Indication: NEOPLASM MALIGNANT
  3. ENTRECTINIB [Suspect]
     Active Substance: ENTRECTINIB
     Indication: COLON CANCER
     Dosage: ON 02/DEC/2020, LAST DOSE ADMINISTERED
     Route: 048
     Dates: start: 20200831

REACTIONS (7)
  - Mental impairment [Recovered/Resolved]
  - Ascites [Unknown]
  - Dizziness [Recovering/Resolving]
  - Pulmonary embolism [Recovering/Resolving]
  - Deep vein thrombosis [Unknown]
  - Increased appetite [Recovered/Resolved]
  - Metastases to ovary [Unknown]

NARRATIVE: CASE EVENT DATE: 20200908
